FAERS Safety Report 19461921 (Version 2)
Quarter: 2021Q4

REPORT INFORMATION
  Report Type: Spontaneous
  Country: US (occurrence: US)
  Receive Date: 20210625
  Receipt Date: 20211025
  Transmission Date: 20220303
  Serious: Yes (Hospitalization, Other)
  Sender: FDA-Public Use
  Company Number: US-ELI_LILLY_AND_COMPANY-US202106005670

PATIENT
  Age: 75 Year
  Sex: Male

DRUGS (1)
  1. BAMLANIVIMAB [Suspect]
     Active Substance: BAMLANIVIMAB
     Indication: COVID-19
     Dosage: 700 MG, SINGLE
     Route: 042
     Dates: start: 20201221, end: 20201221

REACTIONS (3)
  - Pneumonia [Unknown]
  - Cholecystitis acute [Unknown]
  - COVID-19 [Unknown]

NARRATIVE: CASE EVENT DATE: 20210227
